FAERS Safety Report 5665525-X (Version None)
Quarter: 2008Q1

REPORT INFORMATION
  Report Type: 
  Country: None (occurrence: None)
  Receive Date: 20080314
  Receipt Date: 20071210
  Transmission Date: 20080703
  Serious: No
  Sender: FDA-Public Use
  Company Number: US-ABBOTT-07P-163-0428403-00

PATIENT
  Sex: Female
  Weight: 104.54 kg

DRUGS (5)
  1. HUMIRA [Suspect]
     Indication: CROHN'S DISEASE
     Dosage: LOADING DOSE
     Route: 058
     Dates: start: 20071001, end: 20071210
  2. INFLIXIMAB [Concomitant]
     Indication: CROHN'S DISEASE
  3. LEUKINE [Concomitant]
     Indication: CROHN'S DISEASE
  4. METHOTREXATE [Concomitant]
     Indication: CROHN'S DISEASE
  5. MESALAMINE [Concomitant]
     Indication: CROHN'S DISEASE

REACTIONS (2)
  - RASH [None]
  - SKIN EXFOLIATION [None]
